FAERS Safety Report 24151919 (Version 1)
Quarter: 2024Q3

REPORT INFORMATION
  Report Type: Spontaneous
  Country: US (occurrence: US)
  Receive Date: 20240730
  Receipt Date: 20240730
  Transmission Date: 20241017
  Serious: Yes (Other)
  Sender: BIOCODEX
  Company Number: US-BIOCODEX2-2024000658

PATIENT
  Age: 4 Year
  Sex: Male
  Weight: 25.3 kg

DRUGS (3)
  1. DIACOMIT [Suspect]
     Active Substance: STIRIPENTOL
     Indication: Severe myoclonic epilepsy of infancy
     Dosage: DAYS 1 THROUGH 14: TAKE 50 ?MG BY MOUTH THREE TIMES DAILY.
     Route: 048
     Dates: start: 20240430
  2. DIACOMIT [Suspect]
     Active Substance: STIRIPENTOL
     Indication: Severe myoclonic epilepsy of infancy
     Dosage: DAYS 15 AND THEREAFTER: TAKE 100 MG BY MOUTH THREE TIMES DAILY.
     Route: 048
     Dates: start: 20240430
  3. CLOBAZAM [Concomitant]
     Active Substance: CLOBAZAM
     Indication: Severe myoclonic epilepsy of infancy
     Route: 065

REACTIONS (3)
  - Product preparation issue [Unknown]
  - Change in seizure presentation [Unknown]
  - Therapy interrupted [Unknown]
